FAERS Safety Report 22618274 (Version 1)
Quarter: 2023Q2

REPORT INFORMATION
  Report Type: Spontaneous
  Country: CN (occurrence: CN)
  Receive Date: 20230620
  Receipt Date: 20230620
  Transmission Date: 20230721
  Serious: Yes (Life-Threatening)
  Sender: FDA-Public Use
  Company Number: CN-BEH-2023159951

PATIENT
  Age: 48 Year
  Sex: Male

DRUGS (1)
  1. ALBURX [Suspect]
     Active Substance: ALBUMIN HUMAN
     Indication: Hypoproteinaemia
     Dosage: 10 GRAM, OD
     Route: 041
     Dates: start: 20230425, end: 20230425

REACTIONS (7)
  - Hypersensitivity [Recovered/Resolved]
  - Pruritus [Recovered/Resolved]
  - Dyspnoea [Recovered/Resolved]
  - Abdominal pain [Recovered/Resolved]
  - Defaecation urgency [Recovered/Resolved]
  - Syncope [Recovered/Resolved]
  - Hypotension [Recovered/Resolved]

NARRATIVE: CASE EVENT DATE: 20230425
